FAERS Safety Report 21795002 (Version 1)
Quarter: 2022Q4

REPORT INFORMATION
  Report Type: Spontaneous
  Country: US (occurrence: None)
  Receive Date: 20221228
  Receipt Date: 20221228
  Transmission Date: 20230112
  Serious: Yes (Hospitalization)
  Sender: FDA-Public Use
  Company Number: None

PATIENT
  Age: 71 Year
  Sex: Female
  Weight: 50.8 kg

DRUGS (10)
  1. CAPECITABINE [Suspect]
     Active Substance: CAPECITABINE
     Indication: Breast cancer female
     Dosage: OTHER FREQUENCY : AM/PM;?
     Route: 048
  2. CALCIUM CARBONATE [Concomitant]
  3. HEPARIN [Concomitant]
  4. LIDOCAINE AND PRILOCAINE [Concomitant]
  5. LOSARTAN [Concomitant]
  6. MULTIVITAMIN [Concomitant]
  7. OMEPRAZOLE [Concomitant]
  8. PROCHLORPERAZINE [Concomitant]
  9. SIMVASTATIN [Concomitant]
  10. VITAMIN C [Concomitant]

REACTIONS (1)
  - Colitis [None]

NARRATIVE: CASE EVENT DATE: 20221216
